FAERS Safety Report 17759900 (Version 6)
Quarter: 2020Q4

REPORT INFORMATION
  Report Type: Spontaneous
  Country: US (occurrence: US)
  Receive Date: 20200508
  Receipt Date: 20201231
  Transmission Date: 20210113
  Serious: No
  Sender: FDA-Public Use
  Company Number: US-IPSEN BIOPHARMACEUTICALS, INC.-2020-08174

PATIENT
  Age: 71 Year
  Sex: Male
  Weight: 79.37 kg

DRUGS (22)
  1. UPTRAVI [Concomitant]
     Active Substance: SELEXIPAG
     Dates: end: 20200731
  2. TUMS [Concomitant]
     Active Substance: CALCIUM CARBONATE
  3. VITAMIN B12 [Concomitant]
     Active Substance: CYANOCOBALAMIN
  4. VITAMIN B2 [Concomitant]
     Active Substance: RIBOFLAVIN
  5. VITAMIN D2 [Concomitant]
     Active Substance: ERGOCALCIFEROL
  6. SOMATULINE DEPOT [Suspect]
     Active Substance: LANREOTIDE ACETATE
     Indication: MALIGNANT NEOPLASM OF RENAL PELVIS
  7. CARVEDILOL. [Concomitant]
     Active Substance: CARVEDILOL
  8. SYMBICORT [Concomitant]
     Active Substance: BUDESONIDE\FORMOTEROL FUMARATE DIHYDRATE
  9. TRAMADOL. [Concomitant]
     Active Substance: TRAMADOL
  10. SOMATULINE DEPOT [Suspect]
     Active Substance: LANREOTIDE ACETATE
     Indication: OFF LABEL USE
  11. TYVASO [Suspect]
     Active Substance: TREPROSTINIL
     Indication: PRODUCT USED FOR UNKNOWN INDICATION
  12. MINOXIDIL. [Concomitant]
     Active Substance: MINOXIDIL
  13. CENTRUM SILVER [Concomitant]
     Active Substance: MINERALS\VITAMINS
  14. STIOLTO RESPIMAT [Concomitant]
     Active Substance: OLODATEROL HYDROCHLORIDE\TIOTROPIUM BROMIDE MONOHYDRATE
  15. AFINITOR [Concomitant]
     Active Substance: EVEROLIMUS
  16. MYRBETRIQ [Concomitant]
     Active Substance: MIRABEGRON
  17. PROAIR HFA [Concomitant]
     Active Substance: ALBUTEROL SULFATE
  18. OPSUMIT [Concomitant]
     Active Substance: MACITENTAN
     Dates: end: 20200731
  19. AMLODIPINE BESYLATE. [Concomitant]
     Active Substance: AMLODIPINE BESYLATE
  20. SOMATULINE DEPOT [Suspect]
     Active Substance: LANREOTIDE ACETATE
     Indication: NEUROENDOCRINE TUMOUR
     Dosage: 120 MG/0.5 ML SYRINGE UNDER THE SKIN
     Route: 058
     Dates: start: 2020
  21. POTASSIUM CHLORIDE. [Concomitant]
     Active Substance: POTASSIUM CHLORIDE
  22. ELIQUIS [Concomitant]
     Active Substance: APIXABAN

REACTIONS (14)
  - Headache [Unknown]
  - Dizziness [Unknown]
  - Unevaluable event [Unknown]
  - Hypotension [Unknown]
  - Chest discomfort [Not Recovered/Not Resolved]
  - Pain in extremity [Not Recovered/Not Resolved]
  - Off label use [Unknown]
  - Fatigue [Unknown]
  - Agitation [Unknown]
  - Dizziness [Unknown]
  - Cough [Unknown]
  - Pain [Unknown]
  - Dyspnoea [Unknown]
  - Epigastric discomfort [Unknown]

NARRATIVE: CASE EVENT DATE: 2020
